FAERS Safety Report 14496807 (Version 2)
Quarter: 2018Q2

REPORT INFORMATION
  Report Type: Spontaneous
  Country: US (occurrence: US)
  Receive Date: 20180207
  Receipt Date: 20180412
  Transmission Date: 20180711
  Serious: Yes (Other)
  Sender: FDA-Public Use
  Company Number: US-PFIZER INC-2018048350

PATIENT
  Age: 57 Year
  Sex: Male

DRUGS (2)
  1. SUTENT [Suspect]
     Active Substance: SUNITINIB MALATE
     Indication: CARCINOID TUMOUR
     Dosage: 50 MG, CYCLIC (DAILY DAYS 1-28/42)
     Route: 048
     Dates: start: 20171212
  2. SUTENT [Suspect]
     Active Substance: SUNITINIB MALATE
     Dosage: 37.5 MG, DAILY
     Route: 048
     Dates: start: 20180117

REACTIONS (5)
  - Vomiting [Unknown]
  - Product use in unapproved indication [Unknown]
  - Chills [Unknown]
  - Chest pain [Unknown]
  - Mental impairment [Unknown]

NARRATIVE: CASE EVENT DATE: 20171212
